FAERS Safety Report 8069808-8 (Version None)
Quarter: 2012Q1

REPORT INFORMATION
  Report Type: 
  Country: None (occurrence: None)
  Receive Date: 20120125
  Receipt Date: 20120125
  Transmission Date: 20120608
  Serious: Yes (Other)
  Sender: FDA-Public Use
  Company Number: None

PATIENT
  Sex: Male
  Weight: 90.718 kg

DRUGS (1)
  1. LORATADINE [Suspect]
     Indication: SINUSITIS
     Dosage: 1 TAB DAILY
     Route: 048
     Dates: start: 20120116, end: 20120120

REACTIONS (4)
  - SUICIDAL IDEATION [None]
  - DEPRESSION [None]
  - AGITATION [None]
  - IRRITABILITY [None]
